FAERS Safety Report 11524903 (Version 3)
Quarter: 2015Q3

REPORT INFORMATION
  Report Type: Spontaneous
  Country: US (occurrence: US)
  Receive Date: 20150918
  Receipt Date: 20150929
  Transmission Date: 20151125
  Serious: Yes (Other)
  Sender: FDA-Public Use
  Company Number: US-LUNDBECK-DKLU2004151

PATIENT
  Sex: Female

DRUGS (1)
  1. NORTHERA [Suspect]
     Active Substance: DROXIDOPA
     Indication: AUTONOMIC NEUROPATHY
     Route: 065

REACTIONS (7)
  - Headache [Unknown]
  - Dehydration [Recovering/Resolving]
  - Seizure [Recovering/Resolving]
  - Memory impairment [Unknown]
  - Mental impairment [Unknown]
  - Pain in extremity [Unknown]
  - Nausea [Unknown]
